FAERS Safety Report 7082476-7 (Version None)
Quarter: 2010Q3

REPORT INFORMATION
  Report Type: 
  Country: None (occurrence: None)
  Receive Date: 20100929
  Receipt Date: 20100525
  Transmission Date: 20110219
  Serious: No
  Sender: FDA-Public Use
  Company Number: US-WYE-H15743710

PATIENT
  Age: 69 Year
  Sex: Male
  Weight: 73.55 kg

DRUGS (4)
  1. PRISTIQ [Suspect]
     Indication: DEPRESSION
  2. METOPROLOL SUCCINATE [Concomitant]
  3. AVAPRO [Concomitant]
  4. FLEXERIL [Concomitant]

REACTIONS (4)
  - BLOOD SODIUM DECREASED [None]
  - HYPERGLYCAEMIA [None]
  - HYPERTENSION [None]
  - NONSPECIFIC REACTION [None]
